FAERS Safety Report 8030240-4 (Version None)
Quarter: 2011Q4

REPORT INFORMATION
  Report Type: 
  Country: None (occurrence: None)
  Receive Date: 20111130
  Receipt Date: 20110815
  Transmission Date: 20120403
  Serious: Yes (Hospitalization, Other)
  Sender: FDA-Public Use
  Company Number: US201007007858

PATIENT
  Sex: Male
  Weight: 123.4 kg

DRUGS (12)
  1. BUMEX [Concomitant]
  2. TEKTURNA (ALISKIREN FUMARATE) [Concomitant]
  3. INSPRA [Concomitant]
  4. PREVACID [Concomitant]
  5. DIOVAN [Concomitant]
  6. ALBUTEROL [Concomitant]
  7. LANTUS [Concomitant]
  8. BYETTA [Suspect]
     Dates: start: 20060901, end: 20090801
  9. NOVOLOG [Concomitant]
  10. LIPITOR [Concomitant]
  11. DYNACIRC [Concomitant]
  12. COREG [Concomitant]

REACTIONS (3)
  - OFF LABEL USE [None]
  - RENAL FAILURE [None]
  - PANCREATITIS [None]
